FAERS Safety Report 5214797-4 (Version None)
Quarter: 2007Q1

REPORT INFORMATION
  Report Type: 
  Country: None (occurrence: None)
  Receive Date: 20061113
  Receipt Date: 20051102
  Transmission Date: 20070707
  Serious: Yes (Hospitalization)
  Sender: FDA-Public Use
  Company Number: US-JNJFOC-20051002871

PATIENT
  Age: 91 Year
  Sex: Male
  Weight: 90.2658 kg

DRUGS (2)
  1. LEVAQUIN [Suspect]
     Indication: URINARY TRACT INFECTION
     Dosage: 500 MG, 1 IN 1 DAY
     Dates: start: 20050928, end: 20050928
  2. GLYBURIDE [Suspect]
     Indication: DIABETES MELLITUS

REACTIONS (3)
  - BLOOD CREATININE INCREASED [None]
  - DRUG INTERACTION [None]
  - HYPOGLYCAEMIA [None]
